FAERS Safety Report 23710537 (Version 3)
Quarter: 2024Q3

REPORT INFORMATION
  Report Type: Spontaneous
  Country: CA (occurrence: CA)
  Receive Date: 20240405
  Receipt Date: 20240907
  Transmission Date: 20241016
  Serious: Yes (Other)
  Sender: CELLTRION
  Company Number: CA-CELLTRION INC.-2024CA008034

PATIENT

DRUGS (11)
  1. INFLECTRA [Suspect]
     Active Substance: INFLIXIMAB-DYYB
     Indication: Crohn^s disease
     Dosage: 300 MG, Q 0, 1, 5 WEEKS, THEN EVERY 8 WEEKS
     Route: 042
     Dates: start: 20190516, end: 20191024
  2. INFLECTRA [Suspect]
     Active Substance: INFLIXIMAB-DYYB
     Dosage: 300 MG, EVERY 4 WEEKS
     Route: 042
     Dates: start: 20191127, end: 20201020
  3. INFLECTRA [Suspect]
     Active Substance: INFLIXIMAB-DYYB
     Dosage: 300 MG, RE-INDUCTION AT Q 0 , 2, 6 WEEK THEN EVERY 4 WEEKS
     Route: 042
     Dates: start: 20210728
  4. INFLECTRA [Suspect]
     Active Substance: INFLIXIMAB-DYYB
     Dosage: 300 MG, RE-INDUCTION AT Q 0 , 2, 6 WEEK THEN EVERY 4 WEEKS
     Route: 042
     Dates: start: 20240229
  5. INFLECTRA [Suspect]
     Active Substance: INFLIXIMAB-DYYB
     Dosage: 300 MG, RE-INDUCTION AT Q 0 , 2, 6 WEEK THEN EVERY 4 WEEKS (300MG, 4 WEEKS)
     Route: 042
     Dates: start: 20240328
  6. INFLECTRA [Suspect]
     Active Substance: INFLIXIMAB-DYYB
     Dosage: 300 MG, RE-INDUCTION AT Q 0 , 2, 6 WEEK THEN EVERY 4 WEEKS
     Route: 042
     Dates: start: 20240523
  7. INFLECTRA [Suspect]
     Active Substance: INFLIXIMAB-DYYB
     Dosage: 300 MG, AFTER 6 WEEKS AND 6 DAYS  (RE-INDUCTION AT Q 0 , 2, 6 WEEK THEN EVERY 4 WEEKS )
     Route: 042
     Dates: start: 20240710
  8. INFLECTRA [Suspect]
     Active Substance: INFLIXIMAB-DYYB
     Dosage: 300 MG, 7 WEEKS (EVERY 4 WEEKS)
     Route: 042
     Dates: start: 20240828
  9. IRON [Concomitant]
     Active Substance: IRON
     Dosage: 1 DF, UNKNOWN DOSE
     Route: 048
  10. PREDNISONE [Concomitant]
     Active Substance: PREDNISONE
     Dosage: 1 DF, UNKNOWN DOSE
     Route: 048
  11. CHOLECALCIFEROL [Concomitant]
     Active Substance: CHOLECALCIFEROL
     Dosage: 1 DF, UNKNOWN DOSE
     Route: 048

REACTIONS (2)
  - Syncope [Not Recovered/Not Resolved]
  - Inappropriate schedule of product administration [Unknown]

NARRATIVE: CASE EVENT DATE: 20240710
